FAERS Safety Report 8338880-X (Version None)
Quarter: 2012Q2

REPORT INFORMATION
  Report Type: 
  Country: None (occurrence: None)
  Receive Date: 20120506
  Receipt Date: 20120426
  Transmission Date: 20120825
  Serious: Yes (Other)
  Sender: FDA-Public Use
  Company Number: JP-VERTEX PHARMACEUTICALS INC.-AE-2012-003188

PATIENT
  Age: 67 Year
  Sex: Male

DRUGS (14)
  1. REBETOL [Concomitant]
     Route: 048
     Dates: start: 20120224, end: 20120229
  2. LOXONIN [Concomitant]
     Route: 048
     Dates: start: 20120224
  3. DIOVAN [Concomitant]
     Route: 048
  4. ANTEBATE OINTMENT [Concomitant]
     Route: 061
     Dates: start: 20120224
  5. NORVASC [Concomitant]
     Route: 048
  6. HUMALOG [Concomitant]
     Route: 058
  7. LANSOPRAZOLE [Concomitant]
     Route: 048
     Dates: start: 20120224
  8. PETROLATUM SALICYLATE [Concomitant]
     Route: 061
     Dates: start: 20120224
  9. TELAVIC (TELAPREVIR) [Suspect]
     Indication: HEPATITIS C
     Route: 048
     Dates: start: 20120224, end: 20120228
  10. ASPIRIN [Concomitant]
     Route: 048
  11. DOXAZOSIN MESYLATE [Concomitant]
     Route: 048
  12. LASIX [Concomitant]
     Route: 048
  13. PEG-INTRON [Concomitant]
     Route: 058
     Dates: start: 20120224
  14. REBETOL [Concomitant]
     Route: 048
     Dates: start: 20120307

REACTIONS (3)
  - DRUG ERUPTION [None]
  - NAUSEA [None]
  - DECREASED APPETITE [None]
